FAERS Safety Report 15739156 (Version 2)
Quarter: 2019Q1

REPORT INFORMATION
  Report Type: Spontaneous
  Country: US (occurrence: US)
  Receive Date: 20181219
  Receipt Date: 20190307
  Transmission Date: 20190417
  Serious: Yes (Other)
  Sender: FDA-Public Use
  Company Number: PHEH2018US053302

PATIENT
  Sex: Male

DRUGS (2)
  1. TASIGNA [Suspect]
     Active Substance: NILOTINIB
     Indication: CHRONIC MYELOID LEUKAEMIA
     Dosage: 400 MG, BID
     Route: 065
     Dates: start: 20080201, end: 20170825
  2. BOSULIF [Suspect]
     Active Substance: BOSUTINIB MONOHYDRATE
     Indication: CHRONIC MYELOID LEUKAEMIA
     Dosage: UNK
     Route: 065
     Dates: start: 201802

REACTIONS (22)
  - Weight decreased [Unknown]
  - Depression [Unknown]
  - Abdominal pain [Unknown]
  - Myocardial infarction [Unknown]
  - Pleural effusion [Unknown]
  - Pelvic fracture [Unknown]
  - Cerebrovascular accident [Unknown]
  - Upper respiratory tract infection [Unknown]
  - Arteriosclerosis [Unknown]
  - Palpitations [Unknown]
  - Vertebral artery stenosis [Unknown]
  - Pollakiuria [Unknown]
  - Coronary artery disease [Unknown]
  - Syncope [Unknown]
  - Cardiovascular disorder [Unknown]
  - Gait disturbance [Unknown]
  - Haematuria [Unknown]
  - Gastrooesophageal reflux disease [Unknown]
  - Arterial stenosis [Unknown]
  - Atrial fibrillation [Unknown]
  - Anaemia [Unknown]
  - Dizziness [Unknown]
